FAERS Safety Report 9649540 (Version 5)
Quarter: 2014Q1

REPORT INFORMATION
  Report Type: Spontaneous
  Country: US (occurrence: US)
  Receive Date: 20131028
  Receipt Date: 20140123
  Transmission Date: 20141002
  Serious: Yes (Other)
  Sender: FDA-Public Use
  Company Number: US-PFIZER INC-2013307555

PATIENT
  Age: 58 Year
  Sex: Female
  Weight: 65.76 kg

DRUGS (5)
  1. CELEBREX [Suspect]
     Indication: ARTHRITIS
     Dosage: 200 MG, 1X/DAY
     Route: 048
     Dates: end: 201310
  2. PROTONIX [Suspect]
     Indication: GASTROOESOPHAGEAL REFLUX DISEASE
     Dosage: 40 MG, 2X/DAY
     Route: 048
  3. AMITRIPTYLINE [Concomitant]
     Dosage: UNK, 1X/DAY
  4. BABY ASPIRIN [Concomitant]
     Dosage: UNK, 1X/DAY
  5. SAVELLA [Concomitant]
     Dosage: 50 MG, 2X/DAY

REACTIONS (6)
  - Vocal cord polyp [Recovered/Resolved]
  - Post procedural complication [Unknown]
  - Dysphonia [Unknown]
  - Diabetes mellitus [Unknown]
  - Blood triglycerides increased [Unknown]
  - Blood cholesterol increased [Unknown]
